FAERS Safety Report 9796042 (Version 1)
Quarter: 2014Q1

REPORT INFORMATION
  Report Type: Spontaneous
  Country: CL (occurrence: CL)
  Receive Date: 20140103
  Receipt Date: 20140103
  Transmission Date: 20141002
  Serious: Yes (Other)
  Sender: FDA-Public Use
  Company Number: CL-PFIZER INC-2013373108

PATIENT
  Age: 87 Year
  Sex: Female

DRUGS (5)
  1. XALATAN [Suspect]
     Indication: GLAUCOMA
     Dosage: 1 DROP IN EACH EYE EVERY 12 HOURS
     Route: 047
     Dates: start: 1998
  2. CARDICON - SLOW RELEASE ^LABOMED^ [Concomitant]
  3. HYDROCHLOROTHIAZIDE [Concomitant]
  4. TRAMADOL/ACETAMINOPHEN [Concomitant]
  5. OMEPRAZOLE [Concomitant]

REACTIONS (2)
  - Bedridden [Not Recovered/Not Resolved]
  - Incorrect dose administered [Not Recovered/Not Resolved]
